FAERS Safety Report 25359259 (Version 1)
Quarter: 2025Q2

REPORT INFORMATION
  Report Type: Report from Study
  Country: US (occurrence: US)
  Receive Date: 20250526
  Receipt Date: 20250526
  Transmission Date: 20250716
  Serious: Yes (Hospitalization, Other)
  Sender: EXELIXIS
  Company Number: US-EXELIXIS-EXL-2025-006021

PATIENT
  Age: 77 Year
  Sex: Male
  Weight: 86.17 kg

DRUGS (34)
  1. CABOMETYX [Suspect]
     Active Substance: CABOZANTINIB S-MALATE
     Indication: Metastatic renal cell carcinoma
     Route: 048
  2. CABOMETYX [Suspect]
     Active Substance: CABOZANTINIB S-MALATE
     Dosage: 20 MG, QD
     Route: 048
     Dates: start: 202408, end: 20250222
  3. OPDIVO [Suspect]
     Active Substance: NIVOLUMAB
     Indication: Metastatic renal cell carcinoma
     Dosage: 240 MG, Q2WEEKS
     Route: 042
  4. SENNA [Concomitant]
     Active Substance: SENNOSIDES
  5. COMPAZINE [Concomitant]
     Active Substance: PROCHLORPERAZINE MALEATE
  6. ONDANSETRON HYDROCHLORIDE [Concomitant]
     Active Substance: ONDANSETRON HYDROCHLORIDE
  7. IMODIUM A-D [Concomitant]
     Active Substance: LOPERAMIDE HYDROCHLORIDE
  8. LIDODERM [Concomitant]
     Active Substance: LIDOCAINE
  9. LEVOTHYROXINE SODIUM [Concomitant]
     Active Substance: LEVOTHYROXINE SODIUM
  10. NIZORAL [Concomitant]
     Active Substance: KETOCONAZOLE
  11. FLONASE [Concomitant]
     Active Substance: FLUTICASONE PROPIONATE
  12. VOLTAREN [Concomitant]
     Active Substance: DICLOFENAC SODIUM
  13. RESTASIS [Concomitant]
     Active Substance: CYCLOSPORINE
  14. CARVEDILOL [Concomitant]
     Active Substance: CARVEDILOL
  15. BETAMETHASONE VALERATE [Concomitant]
     Active Substance: BETAMETHASONE VALERATE
  16. LIPITOR [Concomitant]
     Active Substance: ATORVASTATIN CALCIUM
     Indication: Blood cholesterol
  17. ASPIRIN [Concomitant]
     Active Substance: ASPIRIN
  18. ZYLOPRIM [Concomitant]
     Active Substance: ALLOPURINOL
  19. ACETAMINOPHEN [Concomitant]
     Active Substance: ACETAMINOPHEN
  20. TEMOVATE [Concomitant]
     Active Substance: CLOBETASOL PROPIONATE
     Indication: Dermatitis
  21. ADVAIR HFA [Concomitant]
     Active Substance: FLUTICASONE PROPIONATE\SALMETEROL XINAFOATE
     Indication: Cough
  22. LASIX [Concomitant]
     Active Substance: FUROSEMIDE
  23. CORTEF [Concomitant]
     Active Substance: HYDROCORTISONE
  24. ATARAX [Concomitant]
     Active Substance: HYDROXYZINE HYDROCHLORIDE
     Indication: Anxiety
  25. LEVAQUIN [Concomitant]
     Active Substance: LEVOFLOXACIN
  26. K dur [Concomitant]
  27. PROCHLORPERAZINE MALEATE [Concomitant]
     Active Substance: PROCHLORPERAZINE MALEATE
  28. LOPERAMIDE [Concomitant]
     Active Substance: LOPERAMIDE
  29. LIDOCAINE [Concomitant]
     Active Substance: LIDOCAINE
  30. KETOCONAZOLE [Concomitant]
     Active Substance: KETOCONAZOLE
  31. FLONASE ALLERGY RELIEF [Concomitant]
     Active Substance: FLUTICASONE PROPIONATE
  32. VOLTAREN ARTHRITIS PAIN [Concomitant]
     Active Substance: DICLOFENAC SODIUM
  33. ATORVASTATIN CALCIUM [Concomitant]
     Active Substance: ATORVASTATIN CALCIUM
  34. ALLOPURINOL [Concomitant]
     Active Substance: ALLOPURINOL

REACTIONS (10)
  - Ejection fraction decreased [Recovering/Resolving]
  - COVID-19 [Unknown]
  - Septic shock [Recovered/Resolved]
  - Immunodeficiency [Unknown]
  - Adrenal insufficiency [Unknown]
  - Acute kidney injury [Unknown]
  - Malignant neoplasm progression [Recovering/Resolving]
  - Adverse drug reaction [Recovering/Resolving]
  - Hepatic enzyme increased [Unknown]
  - Normocytic anaemia [Unknown]

NARRATIVE: CASE EVENT DATE: 20250222
